FAERS Safety Report 19402470 (Version 1)
Quarter: 2021Q2

REPORT INFORMATION
  Report Type: Spontaneous
  Country: FR (occurrence: FR)
  Receive Date: 20210610
  Receipt Date: 20210610
  Transmission Date: 20210717
  Serious: Yes (Other)
  Sender: FDA-Public Use
  Company Number: NVSC2021FR130159

PATIENT
  Age: 21 Year
  Sex: Female

DRUGS (2)
  1. TEGRETOL [Suspect]
     Active Substance: CARBAMAZEPINE
     Indication: PRODUCT USED FOR UNKNOWN INDICATION
     Dosage: 200 MG
     Route: 065
     Dates: start: 2017, end: 202008
  2. TEGRETOL [Suspect]
     Active Substance: CARBAMAZEPINE
     Dosage: 600 MG
     Route: 065
     Dates: start: 202008, end: 202104

REACTIONS (4)
  - Dizziness [Unknown]
  - Near death experience [Unknown]
  - Cardiac disorder [Unknown]
  - Dyspnoea [Unknown]
